FAERS Safety Report 4336617-2 (Version None)
Quarter: 2004Q2

REPORT INFORMATION
  Report Type: 
  Country: None (occurrence: None)
  Receive Date: 20040408
  Receipt Date: 20040329
  Transmission Date: 20050107
  Serious: Yes (Death)
  Sender: FDA-Public Use
  Company Number: 163-20785-04020136

PATIENT
  Age: 87 Year
  Sex: Female

DRUGS (1)
  1. THALOMID [Suspect]
     Indication: MYELODYSPLASTIC SYNDROME
     Dosage: 50-200 MG, DAILY, ORAL
     Route: 048
     Dates: start: 20030709, end: 20031009

REACTIONS (5)
  - CONSTIPATION [None]
  - DISEASE PROGRESSION [None]
  - DRUG INTOLERANCE [None]
  - MYELODYSPLASTIC SYNDROME [None]
  - SOMNOLENCE [None]
